FAERS Safety Report 10721938 (Version 1)
Quarter: 2015Q1

REPORT INFORMATION
  Report Type: Spontaneous
  Country: GT (occurrence: GT)
  Receive Date: 20150119
  Receipt Date: 20150119
  Transmission Date: 20150721
  Serious: Yes (Death, Other)
  Sender: FDA-Public Use
  Company Number: GT-BAYER-2015-006648

PATIENT
  Age: 64 Year
  Sex: Male

DRUGS (1)
  1. STIVARGA [Suspect]
     Active Substance: REGORAFENIB
     Indication: COLON CANCER
     Dosage: UNK
     Route: 048
     Dates: start: 20141117, end: 20141229

REACTIONS (7)
  - Anorectal disorder [None]
  - Internal haemorrhage [None]
  - Colon cancer [Fatal]
  - Hepatic failure [None]
  - Pyrexia [None]
  - Renal failure [None]
  - Aphagia [None]

NARRATIVE: CASE EVENT DATE: 20141229
